FAERS Safety Report 10345806 (Version 1)
Quarter: 2014Q3

REPORT INFORMATION
  Report Type: Spontaneous
  Country: PL (occurrence: PL)
  Receive Date: 20140728
  Receipt Date: 20140728
  Transmission Date: 20150326
  Serious: Yes (Life-Threatening)
  Sender: FDA-Public Use
  Company Number: PHHY2014PL088593

PATIENT
  Age: 72 Year
  Sex: Female
  Weight: 63 kg

DRUGS (1)
  1. FLUOROURACIL EBEWE [Suspect]
     Active Substance: FLUOROURACIL
     Indication: COLON CANCER
     Dosage: 660 MG, UNK
     Route: 042
     Dates: start: 20130930

REACTIONS (1)
  - Asthenia [Unknown]

NARRATIVE: CASE EVENT DATE: 20140310
